FAERS Safety Report 21010922 (Version 1)
Quarter: 2022Q2

REPORT INFORMATION
  Report Type: Spontaneous
  Country: DK (occurrence: DK)
  Receive Date: 20220627
  Receipt Date: 20220627
  Transmission Date: 20220720
  Serious: Yes (Life-Threatening, Hospitalization)
  Sender: FDA-Public Use
  Company Number: None

PATIENT
  Age: 79 Year
  Sex: Female

DRUGS (12)
  1. RUXIENCE [Suspect]
     Active Substance: RITUXIMAB-PVVR
     Indication: Chronic lymphocytic leukaemia
     Dosage: 500 MG OF THIS BATCH 13JUN2022. UNKNOWN DOSE INTERVAL. STRENGTH: 500MG
     Route: 042
     Dates: start: 20220516, end: 20220613
  2. RUXIENCE [Suspect]
     Active Substance: RITUXIMAB-PVVR
     Dosage: 300 MG OF THIS BATCH 13JUN2022. UNKNOWN DOSE INTERVAL. STRENGTH: 100MG
     Route: 042
     Dates: start: 20220516, end: 20220613
  3. PROMETHAZINE HYDROCHLORIDE [Concomitant]
     Active Substance: PROMETHAZINE HYDROCHLORIDE
     Indication: Insomnia
     Dates: start: 20220112
  4. MAXIDEX [Concomitant]
     Active Substance: DEXAMETHASONE
     Indication: Iridocyclitis
     Dates: start: 20220607
  5. ENALAPRIL [Concomitant]
     Active Substance: ENALAPRIL
     Indication: Hypertension
     Dates: start: 20171103
  6. XARELTO [Concomitant]
     Active Substance: RIVAROXABAN
     Indication: Thrombosis prophylaxis
     Dates: start: 20161010
  7. KALIUMKLORID ORIFARM [Concomitant]
     Indication: Mineral supplementation
     Dates: start: 20161010
  8. METOPROLOL SUCCINATE [Concomitant]
     Active Substance: METOPROLOL SUCCINATE
     Indication: Heart rate irregular
     Dates: start: 20171103
  9. CLOBETASOL [Concomitant]
     Active Substance: CLOBETASOL
     Indication: Skin disorder
     Dates: start: 20220524
  10. LASIX [Concomitant]
     Active Substance: FUROSEMIDE
     Indication: Diuretic therapy
     Dates: start: 20190222
  11. ATORVASTATIN [Concomitant]
     Active Substance: ATORVASTATIN
     Indication: Hypercholesterolaemia
     Dates: start: 20161028
  12. MECASTRIN [Concomitant]
     Indication: Insomnia
     Dates: start: 20220223

REACTIONS (5)
  - Cardiac arrest [Recovered/Resolved]
  - Malaise [Recovered/Resolved]
  - Respiratory depression [Recovered/Resolved]
  - Anaphylactic reaction [Recovered/Resolved]
  - Blood pressure decreased [Recovered/Resolved]

NARRATIVE: CASE EVENT DATE: 20220613
